FAERS Safety Report 5154794-0 (Version None)
Quarter: 2006Q4

REPORT INFORMATION
  Report Type: 
  Country: None (occurrence: None)
  Receive Date: 20061115
  Receipt Date: 20061115
  Transmission Date: 20070319
  Serious: Yes (Hospitalization, Other)
  Sender: FDA-Public Use
  Company Number: None

PATIENT
  Age: 38 Year
  Sex: Female
  Weight: 55.3388 kg

DRUGS (2)
  1. EQUATE EXTRA STRENGTH PAIN 500 MG  PERRIGO [Suspect]
     Indication: PAIN
     Dosage: 2 PILLS EVERY 6 PO
     Route: 048
     Dates: start: 20060825, end: 20061013
  2. TYLENOL (CAPLET) [Suspect]
     Indication: PAIN
     Dosage: DON'T REMEMBER PO
     Route: 048
     Dates: start: 20060825, end: 20061013

REACTIONS (13)
  - ABDOMINAL DISCOMFORT [None]
  - AGITATION [None]
  - BURNING SENSATION [None]
  - COLON CANCER [None]
  - COLONIC POLYP [None]
  - FEELING ABNORMAL [None]
  - GASTROINTESTINAL PAIN [None]
  - HAEMORRHAGE [None]
  - HAEMORRHOIDS [None]
  - NAUSEA [None]
  - PAIN [None]
  - PHARMACEUTICAL PRODUCT COMPLAINT [None]
  - VOMITING [None]
